FAERS Safety Report 8707992 (Version 4)
Quarter: 2015Q1

REPORT INFORMATION
  Report Type: Spontaneous
  Country: US (occurrence: US)
  Receive Date: 20120806
  Receipt Date: 20150107
  Transmission Date: 20150721
  Serious: Yes (Other)
  Sender: FDA-Public Use
  Company Number: US-PFIZER INC-2012185918

PATIENT
  Age: 60 Year
  Sex: Female

DRUGS (40)
  1. TYLENOL [Concomitant]
     Active Substance: ACETAMINOPHEN
     Dosage: UNK
  2. WELLBUTRIN [Concomitant]
     Active Substance: BUPROPION HYDROCHLORIDE
     Dosage: UNK
  3. ALDACTONE [Concomitant]
     Active Substance: SPIRONOLACTONE
     Dosage: UNK
  4. GLUCOSAMINE [Concomitant]
     Active Substance: GLUCOSAMINE
     Dosage: UNK
  5. K-DUR [Concomitant]
     Active Substance: POTASSIUM CHLORIDE
  6. AMBIEN [Concomitant]
     Active Substance: ZOLPIDEM TARTRATE
     Dosage: UNK
  7. TIKOSYN [Concomitant]
     Active Substance: DOFETILIDE
     Dosage: UNK
  8. MAG OX [Concomitant]
     Active Substance: MAGNESIUM OXIDE
     Dosage: UNK
  9. FAMVIR [Concomitant]
     Active Substance: FAMCICLOVIR
     Dosage: UNK
  10. FLECAINIDE [Concomitant]
     Active Substance: FLECAINIDE
     Dosage: UNK
  11. POTASSIUM [Concomitant]
     Active Substance: POTASSIUM
     Dosage: UNK
  12. MULTIVITAMINS [Concomitant]
     Active Substance: VITAMINS
  13. TRICOR [Concomitant]
     Active Substance: FENOFIBRATE
     Dosage: UNK
  14. SYNTHROID [Concomitant]
     Active Substance: LEVOTHYROXINE SODIUM
     Dosage: UNK
  15. NIACIN. [Concomitant]
     Active Substance: NIACIN
     Dosage: UNK
  16. REVATIO [Suspect]
     Active Substance: SILDENAFIL CITRATE
     Indication: PULMONARY ARTERIAL HYPERTENSION
     Dosage: 20 MG, 3X/DAY
     Route: 048
     Dates: start: 20101214
  17. REVATIO [Suspect]
     Active Substance: SILDENAFIL CITRATE
     Indication: PULMONARY HYPERTENSION
     Dosage: 20 MG, 2X/DAY
  18. ALLEGRA [Concomitant]
     Active Substance: FEXOFENADINE HYDROCHLORIDE
     Dosage: UNK
  19. VERAPAMIL [Concomitant]
     Active Substance: VERAPAMIL HYDROCHLORIDE
     Dosage: UNK
  20. XARELTO [Concomitant]
     Active Substance: RIVAROXABAN
     Dosage: UNK
  21. PROTONIX [Concomitant]
     Active Substance: PANTOPRAZOLE SODIUM
     Dosage: UNK
  22. COREG [Concomitant]
     Active Substance: CARVEDILOL
     Dosage: UNK
  23. OCUVITE [Concomitant]
     Active Substance: VITAMINS
     Dosage: UNK
  24. VITAMIN D3 [Concomitant]
     Active Substance: CHOLECALCIFEROL
     Dosage: UNK
  25. FLEXERIL [Concomitant]
     Active Substance: CYCLOBENZAPRINE HYDROCHLORIDE
     Dosage: UNK
  26. VITAMIN D [Concomitant]
     Active Substance: CHOLECALCIFEROL
  27. HYDROCHLOROTHIAZIDE/LOSARTAN [Concomitant]
     Dosage: UNK
  28. PRADAXA [Concomitant]
     Active Substance: DABIGATRAN ETEXILATE MESYLATE
     Dosage: UNK
  29. DOCUSATE [Concomitant]
     Active Substance: DOCUSATE
     Dosage: UNK
  30. GABAPENTIN. [Concomitant]
     Active Substance: GABAPENTIN
     Dosage: UNK
  31. NOVOLOG [Concomitant]
     Active Substance: INSULIN ASPART
     Dosage: UNK
  32. BYSTOLIC [Concomitant]
     Active Substance: NEBIVOLOL HYDROCHLORIDE
     Dosage: UNK
  33. COZAAR HCT [Concomitant]
  34. CALCIUM WITH VITAMIN D [Concomitant]
     Active Substance: CALCIUM\VITAMIN D
     Dosage: UNK
  35. NEXIUM [Concomitant]
     Active Substance: ESOMEPRAZOLE MAGNESIUM
     Dosage: UNK
  36. LASIX [Concomitant]
     Active Substance: FUROSEMIDE
     Dosage: UNK
  37. PRAVASTATIN [Concomitant]
     Active Substance: PRAVASTATIN\PRAVASTATIN SODIUM
     Dosage: UNK
  38. NEURONTIN [Concomitant]
     Active Substance: GABAPENTIN
  39. VICODIN [Concomitant]
     Active Substance: ACETAMINOPHEN\HYDROCODONE BITARTRATE
  40. HYZAAR [Concomitant]
     Active Substance: HYDROCHLOROTHIAZIDE\LOSARTAN POTASSIUM
     Dosage: UNK

REACTIONS (2)
  - Right ventricular systolic pressure increased [Recovered/Resolved]
  - Drug ineffective [Unknown]

NARRATIVE: CASE EVENT DATE: 20120529
